FAERS Safety Report 7651355-6 (Version None)
Quarter: 2011Q3

REPORT INFORMATION
  Report Type: 
  Country: None (occurrence: None)
  Receive Date: 20110802
  Receipt Date: 20110719
  Transmission Date: 20111222
  Serious: Yes (Hospitalization, Other)
  Sender: FDA-Public Use
  Company Number: PHHY2011BR66249

PATIENT
  Sex: Female

DRUGS (3)
  1. INSULIN [Concomitant]
     Indication: DIABETES MELLITUS
     Dosage: 40 UI ONCE DAILY
  2. EXFORGE [Suspect]
     Indication: HYPERTENSION
     Dosage: 320 MG VALSARTAN AND 5 MG AMLODIPINE, DAILY
     Route: 048
  3. ASPIRIN [Concomitant]
     Indication: ANTICOAGULANT THERAPY
     Dosage: 1 DF, DAILY
     Route: 048

REACTIONS (4)
  - BLOOD PRESSURE FLUCTUATION [None]
  - SWELLING [None]
  - DYSPNOEA [None]
  - CARDIAC DISORDER [None]
